FAERS Safety Report 15489401 (Version 1)
Quarter: 2018Q4

REPORT INFORMATION
  Report Type: Spontaneous
  Country: US (occurrence: US)
  Receive Date: 20181004
  Receipt Date: 20181004
  Transmission Date: 20190205
  Serious: Yes (Hospitalization)
  Sender: FDA-Public Use
  Company Number: None

PATIENT
  Age: 86 Year
  Sex: Female

DRUGS (13)
  1. FORTEO [Suspect]
     Active Substance: TERIPARATIDE
     Indication: OSTEOPOROSIS
     Route: 058
     Dates: start: 20180427
  2. METOPROLOL SUCCINATE. [Concomitant]
     Active Substance: METOPROLOL SUCCINATE
  3. OXYCODONE/APAP [Concomitant]
     Active Substance: ACETAMINOPHEN\OXYCODONE HYDROCHLORIDE
  4. OLMESARTAN [Concomitant]
     Active Substance: OLMESARTAN
  5. PREDNISONE. [Concomitant]
     Active Substance: PREDNISONE
  6. MONTELUKAST [Concomitant]
     Active Substance: MONTELUKAST SODIUM
  7. FUROSEMIDE. [Concomitant]
     Active Substance: FUROSEMIDE
  8. AMIODARONE [Concomitant]
     Active Substance: AMIODARONE
  9. DULOXETINE. [Concomitant]
     Active Substance: DULOXETINE
  10. LEVOTHYROXINE. [Concomitant]
     Active Substance: LEVOTHYROXINE
  11. MOMETASONE [Concomitant]
     Active Substance: MOMETASONE
  12. METHOTREXATE. [Concomitant]
     Active Substance: METHOTREXATE
  13. ROPINOROLE [Concomitant]
     Active Substance: ROPINIROLE

REACTIONS (2)
  - Cardiac failure [None]
  - Intentional dose omission [None]

NARRATIVE: CASE EVENT DATE: 20180929
